FAERS Safety Report 10751089 (Version 2)
Quarter: 2015Q1

REPORT INFORMATION
  Report Type: Spontaneous
  Country: NL (occurrence: NL)
  Receive Date: 20150130
  Receipt Date: 20150205
  Transmission Date: 20150721
  Serious: Yes (Hospitalization)
  Sender: FDA-Public Use
  Company Number: NL-TEVA-535960ISR

PATIENT
  Age: 34 Year
  Sex: Female
  Weight: 63 kg

DRUGS (4)
  1. INDOMETACINE CAPSULE 25MG [Suspect]
     Active Substance: INDOMETHACIN
     Route: 048
  2. ZOPICLON TABLET 7,5MG [Concomitant]
     Dosage: ONCE DAILY QUARTER OF A TABLET
     Route: 048
     Dates: start: 20100528
  3. OMEPRAZOL CAPSULE MSR 40MG [Concomitant]
     Active Substance: OMEPRAZOLE
     Dosage: ONCE DAILY ONE PIECE
     Route: 048
     Dates: start: 20130116
  4. INDOMETACINE CAPSULE 25MG [Suspect]
     Active Substance: INDOMETHACIN
     Indication: CLUSTER HEADACHE
     Dosage: 3 TIMES DAILY ONE PIECE, EXTRA INFO: TITRATION SCHEME
     Route: 048
     Dates: start: 20130719

REACTIONS (1)
  - Seizure [Recovered/Resolved]

NARRATIVE: CASE EVENT DATE: 20130727
